FAERS Safety Report 23237611 (Version 1)
Quarter: 2023Q4

REPORT INFORMATION
  Report Type: Spontaneous
  Country: JP (occurrence: JP)
  Receive Date: 20231128
  Receipt Date: 20231128
  Transmission Date: 20240110
  Serious: Yes (Hospitalization)
  Sender: FDA-Public Use
  Company Number: JP-MTPC-MTPC2023-0028293

PATIENT
  Age: 17 Year
  Sex: Male

DRUGS (2)
  1. EDARAVONE [Suspect]
     Active Substance: EDARAVONE
     Indication: Arterial thrombosis
     Dosage: 30 MG EVERY 12 HOURS
     Route: 065
  2. HEPARIN SODIUM [Concomitant]
     Active Substance: HEPARIN SODIUM
     Indication: Arterial thrombosis
     Dosage: 8000 INTERNATIONAL UNIT, QD
     Route: 013

REACTIONS (1)
  - Cerebral venous sinus thrombosis [Recovering/Resolving]
